FAERS Safety Report 14695129 (Version 2)
Quarter: 2018Q2

REPORT INFORMATION
  Report Type: Spontaneous
  Country: FR (occurrence: FR)
  Receive Date: 20180329
  Receipt Date: 20180524
  Transmission Date: 20180711
  Serious: Yes (Other)
  Sender: FDA-Public Use
  Company Number: PHHY2018FR055267

PATIENT
  Age: 22 Year
  Sex: Female
  Weight: 47 kg

DRUGS (2)
  1. CELLCEPT [Concomitant]
     Active Substance: MYCOPHENOLATE MOFETIL\MYCOPHENOLATE MOFETIL HYDROCHLORIDE
     Indication: IMMUNOSUPPRESSION
     Dosage: 1 OT, QD
     Route: 065
     Dates: start: 20170517
  2. TACROLIMUS. [Suspect]
     Active Substance: TACROLIMUS
     Indication: RENAL TRANSPLANT
     Dosage: 1 OT, QD (7.50 UNKNOWN UNIT)
     Route: 065
     Dates: start: 20170609

REACTIONS (1)
  - Aphthous ulcer [Recovered/Resolved]

NARRATIVE: CASE EVENT DATE: 20170801
